FAERS Safety Report 18873889 (Version 2)
Quarter: 2021Q1

REPORT INFORMATION
  Report Type: Report from Study
  Country: US (occurrence: US)
  Receive Date: 20210210
  Receipt Date: 20210329
  Transmission Date: 20210420
  Serious: Yes (Hospitalization, Other)
  Sender: FDA-Public Use
  Company Number: US-ROCHE-2764048

PATIENT
  Age: 70 Year
  Sex: Female
  Weight: 65.18 kg

DRUGS (2)
  1. OLAPARIB. [Suspect]
     Active Substance: OLAPARIB
     Indication: BREAST NEOPLASM
     Dosage: LAST ADMINISTERED DATE 10?OCT?2020?TOTAL DOSE 7250 MG ADMINISTERED IS AN ESTIMATE BASED EXPECTED ADM
     Route: 048
  2. ATEZOLIZUMAB. [Suspect]
     Active Substance: ATEZOLIZUMAB
     Indication: BREAST NEOPLASM
     Route: 041
     Dates: start: 20200925

REACTIONS (3)
  - Failure to thrive [Recovered/Resolved with Sequelae]
  - Anaemia [Unknown]
  - Ascites [Recovered/Resolved with Sequelae]

NARRATIVE: CASE EVENT DATE: 20201010
